FAERS Safety Report 8074420-0 (Version None)
Quarter: 2012Q1

REPORT INFORMATION
  Report Type: 
  Country: None (occurrence: None)
  Receive Date: 20120126
  Receipt Date: 20120117
  Transmission Date: 20120608
  Serious: Yes (Life-Threatening)
  Sender: FDA-Public Use
  Company Number: GB-GLAXOSMITHKLINE-B0775621A

PATIENT
  Age: 38 Year
  Sex: Female

DRUGS (4)
  1. PREGABALIN [Concomitant]
  2. CARBAMAZEPINE [Concomitant]
  3. RETIGABINE [Suspect]
     Indication: EPILEPSY
     Route: 048
     Dates: start: 20111216
  4. LACOSAMIDE [Concomitant]

REACTIONS (5)
  - DEPRESSED MOOD [None]
  - CONFUSIONAL STATE [None]
  - INTENTIONAL SELF-INJURY [None]
  - INTENTIONAL OVERDOSE [None]
  - SUICIDAL IDEATION [None]
